FAERS Safety Report 7582996-2 (Version None)
Quarter: 2011Q2

REPORT INFORMATION
  Report Type: 
  Country: None (occurrence: None)
  Receive Date: 20110627
  Receipt Date: 20110627
  Transmission Date: 20111010
  Serious: Yes (Other)
  Sender: FDA-Public Use
  Company Number: None

PATIENT
  Age: 17 Year
  Sex: Female
  Weight: 72.5755 kg

DRUGS (1)
  1. TAMIFLU [Suspect]
     Indication: H1N1 INFLUENZA
     Dosage: 1 75 MG CAPPSULE TWICE DAILY PO
     Route: 048
     Dates: start: 20091007, end: 20091011

REACTIONS (4)
  - CONFUSIONAL STATE [None]
  - SUICIDAL IDEATION [None]
  - ABDOMINAL PAIN [None]
  - DEPRESSED MOOD [None]
